FAERS Safety Report 5401827-X (Version None)
Quarter: 2007Q3

REPORT INFORMATION
  Report Type: 
  Country: None (occurrence: None)
  Receive Date: 20070726
  Receipt Date: 20070711
  Transmission Date: 20080115
  Serious: Yes (Hospitalization)
  Sender: FDA-Public Use
  Company Number: 8025242

PATIENT
  Age: 24 Year
  Sex: Female

DRUGS (7)
  1. KEPPRA [Suspect]
     Indication: EPILEPSY
     Dates: start: 20070401, end: 20070501
  2. PROCARBAZINE [Concomitant]
  3. CCNU [Concomitant]
  4. TIMOX [Concomitant]
  5. PROTON PUMP INHIBITORS (E.G. PANTOZOL) [Concomitant]
  6. DIMENHYDRINATE [Concomitant]
  7. MCP [Concomitant]

REACTIONS (8)
  - APLASTIC ANAEMIA [None]
  - ASTHENIA [None]
  - BONE MARROW FAILURE [None]
  - CEREBRAL CALCIFICATION [None]
  - CEREBRAL CYST [None]
  - EYE HAEMORRHAGE [None]
  - GASTRITIS [None]
  - PANCYTOPENIA [None]
